FAERS Safety Report 17009478 (Version 1)
Quarter: 2019Q4

REPORT INFORMATION
  Report Type: Spontaneous
  Country: US (occurrence: US)
  Receive Date: 20191108
  Receipt Date: 20191108
  Transmission Date: 20200122
  Serious: No
  Sender: FDA-Public Use
  Company Number: US-PFIZER INC-2019478618

PATIENT
  Age: 55 Year

DRUGS (1)
  1. TALZENNA [Suspect]
     Active Substance: TALAZOPARIB TOSYLATE
     Dosage: 0.75 MG, UNK (REPORTED AS TAKEN FOR ABOUT 5 CYCLES)

REACTIONS (1)
  - Neoplasm progression [Unknown]
